FAERS Safety Report 13339160 (Version 2)
Quarter: 2017Q1

REPORT INFORMATION
  Report Type: Spontaneous
  Country: IT (occurrence: IT)
  Receive Date: 20170315
  Receipt Date: 20170329
  Transmission Date: 20170428
  Serious: Yes (Life-Threatening)
  Sender: FDA-Public Use
  Company Number: PHHY2017IT034537

PATIENT
  Age: 82 Year
  Sex: Female
  Weight: 50 kg

DRUGS (6)
  1. RAMIPRIL. [Interacting]
     Active Substance: RAMIPRIL
     Indication: HYPERTENSION
     Dosage: 5 MG, QD
     Route: 048
     Dates: end: 20170224
  2. CREON [Concomitant]
     Active Substance: PANCRELIPASE AMYLASE\PANCRELIPASE LIPASE\PANCRELIPASE PROTEASE
     Indication: PANCREATIC CARCINOMA
     Dosage: 3 DF, UNK
     Route: 048
     Dates: end: 20170224
  3. CITALOPRAM [Concomitant]
     Active Substance: CITALOPRAM HYDROBROMIDE
     Indication: DEPRESSION
     Dosage: 20 MG, UNK
     Route: 048
     Dates: end: 20170223
  4. BISOPROLOL [Suspect]
     Active Substance: BISOPROLOL
     Indication: HYPERTENSION
     Dosage: 2.5 MG, QD
     Route: 048
     Dates: end: 20170224
  5. ALDACTONE [Interacting]
     Active Substance: SPIRONOLACTONE
     Indication: DIURETIC THERAPY
     Dosage: 100 MG, QD
     Route: 048
     Dates: end: 20170224
  6. LASIX [Suspect]
     Active Substance: FUROSEMIDE
     Indication: DIURETIC THERAPY
     Dosage: 75 MG, QD
     Route: 048
     Dates: end: 20170224

REACTIONS (6)
  - Hyperkalaemia [Recovering/Resolving]
  - Asthenia [Recovering/Resolving]
  - Drug interaction [Unknown]
  - Dyspnoea [Recovering/Resolving]
  - Fall [Recovering/Resolving]
  - Hypotension [Recovering/Resolving]

NARRATIVE: CASE EVENT DATE: 20170224
